FAERS Safety Report 19979327 (Version 2)
Quarter: 2021Q4

REPORT INFORMATION
  Report Type: Report from Study
  Country: None (occurrence: GR)
  Receive Date: 20211021
  Receipt Date: 20211022
  Transmission Date: 20220303
  Serious: Yes (Hospitalization, Other)
  Sender: FDA-Public Use
  Company Number: GR-ABBVIE-21K-066-4129212-00

PATIENT

DRUGS (4)
  1. VENETOCLAX [Suspect]
     Active Substance: VENETOCLAX
     Indication: Acute myeloid leukaemia
     Route: 048
     Dates: start: 202102, end: 202103
  2. VENETOCLAX [Suspect]
     Active Substance: VENETOCLAX
     Route: 048
     Dates: start: 2021
  3. AZACITIDINE [Concomitant]
     Active Substance: AZACITIDINE
     Indication: Acute myeloid leukaemia
     Dates: start: 202102, end: 202103
  4. AZACITIDINE [Concomitant]
     Active Substance: AZACITIDINE
     Dates: start: 2021

REACTIONS (6)
  - Infection [Unknown]
  - Transfusion [Unknown]
  - Platelet transfusion [Unknown]
  - Therapeutic product effect incomplete [Unknown]
  - Acute myeloid leukaemia recurrent [Unknown]
  - Cytopenia [Unknown]

NARRATIVE: CASE EVENT DATE: 20210101
